FAERS Safety Report 6594032-5 (Version None)
Quarter: 2010Q1

REPORT INFORMATION
  Report Type: 
  Country: None (occurrence: None)
  Receive Date: 20100204
  Receipt Date: 20100120
  Transmission Date: 20100710
  Serious: Yes (Death)
  Sender: FDA-Public Use
  Company Number: 2010SP005510

PATIENT
  Age: 78 Year
  Sex: Male

DRUGS (12)
  1. REMERON [Suspect]
     Indication: DRUG USE FOR UNKNOWN INDICATION
     Dosage: 15 MG; PO
     Route: 048
     Dates: start: 20090520, end: 20090525
  2. SIMCORA [Concomitant]
  3. PANTOZOL [Concomitant]
  4. ZOLPIDEM [Concomitant]
  5. ZESTORETIC [Concomitant]
  6. FRESUBIN ENERGY FIBRE [Concomitant]
  7. ASPIRIN [Concomitant]
  8. SERALIN MEPHA [Concomitant]
  9. ZYPREXA VELO [Concomitant]
  10. PREISELVIT (VACCINIUM VITIS-IDABA (REDBERRY EXTRACT) [Concomitant]
  11. VITAMIN C [Concomitant]
  12. HALDOL [Concomitant]

REACTIONS (8)
  - ANORECTAL DISORDER [None]
  - CACHEXIA [None]
  - ESCHERICHIA SEPSIS [None]
  - FAECALOMA [None]
  - LUNG ABSCESS [None]
  - LUNG NEOPLASM [None]
  - NEUTROPENIA [None]
  - UROSEPSIS [None]
